FAERS Safety Report 6791190-4 (Version None)
Quarter: 2010Q2

REPORT INFORMATION
  Report Type: 
  Country: None (occurrence: None)
  Receive Date: 20100624
  Receipt Date: 20100616
  Transmission Date: 20101027
  Serious: Yes (Hospitalization, Other)
  Sender: FDA-Public Use
  Company Number: US-TEVA-238373USA

PATIENT
  Age: 71 Year
  Sex: Male
  Weight: 86.26 kg

DRUGS (8)
  1. AMIODARONE HYDROCHLORIDE [Suspect]
     Indication: CARDIAC DISORDER
     Dosage: DAILY
     Route: 048
     Dates: start: 20080101
  2. CARVEDILOL [Suspect]
     Indication: CARDIAC DISORDER
     Route: 048
  3. NICOTINAM. W/PYRIDOXI. HCL/RIBOFL./THIAM. HCL [Concomitant]
  4. POTASSIUM [Concomitant]
  5. FERROUS SULFATE TAB [Concomitant]
  6. CLOPIDOGREL [Concomitant]
  7. FUROSEMIDE [Concomitant]
  8. ATORVASTATIN CALCIUM [Concomitant]
     Dosage: DAILY

REACTIONS (3)
  - GASTROINTESTINAL HAEMORRHAGE [None]
  - PLATELET COUNT DECREASED [None]
  - PROTHROMBIN TIME PROLONGED [None]
